FAERS Safety Report 18237522 (Version 6)
Quarter: 2021Q2

REPORT INFORMATION
  Report Type: Report from Study
  Country: US (occurrence: US)
  Receive Date: 20200907
  Receipt Date: 20210531
  Transmission Date: 20210717
  Serious: Yes (Other)
  Sender: FDA-Public Use
  Company Number: US-BIOVITRUM-2020US4757

PATIENT
  Age: 56 Year
  Sex: Female

DRUGS (1)
  1. KINERET [Suspect]
     Active Substance: ANAKINRA
     Indication: INTERSTITIAL LUNG DISEASE
     Dosage: 100MG/0.67ML
     Route: 058
     Dates: start: 20200819, end: 202104

REACTIONS (9)
  - Injection site reaction [Unknown]
  - Pneumonia [Not Recovered/Not Resolved]
  - Headache [Unknown]
  - Injection site urticaria [Unknown]
  - Injection site erythema [Unknown]
  - Nausea [Unknown]
  - Pyrexia [Unknown]
  - Off label use [Recovered/Resolved]
  - Adrenal insufficiency [Unknown]

NARRATIVE: CASE EVENT DATE: 20200819
